FAERS Safety Report 19871519 (Version 1)
Quarter: 2021Q3

REPORT INFORMATION
  Report Type: Other
  Country: TW (occurrence: TW)
  Receive Date: 20210923
  Receipt Date: 20210923
  Transmission Date: 20211014
  Serious: Yes (Other)
  Sender: FDA-Public Use
  Company Number: TW-AJANTA PHARMA USA INC.-2118714

PATIENT
  Age: 28 Year
  Sex: Female
  Weight: 47 kg

DRUGS (7)
  1. FLUOXETINE [Concomitant]
     Active Substance: FLUOXETINE HYDROCHLORIDE
  2. HYDROCHLOROTHIAZIDE. [Concomitant]
     Active Substance: HYDROCHLOROTHIAZIDE
  3. OXAZOLAM [Concomitant]
     Active Substance: OXAZOLAM
  4. TRIIODOTHYRONINE [Suspect]
     Active Substance: LIOTHYRONINE SODIUM
  5. METFORMIN HYDROCHLORIDE (ANDA 213651) [Suspect]
     Active Substance: METFORMIN HYDROCHLORIDE
     Indication: WEIGHT DECREASED
  6. TOPIRAMATE. [Suspect]
     Active Substance: TOPIRAMATE
  7. PSEUDOEPHEDRINE. [Concomitant]
     Active Substance: PSEUDOEPHEDRINE HYDROCHLORIDE

REACTIONS (1)
  - Enzyme abnormality [Recovered/Resolved]
